FAERS Safety Report 12795700 (Version 1)
Quarter: 2016Q3

REPORT INFORMATION
  Report Type: Spontaneous
  Country: GB (occurrence: GB)
  Receive Date: 20160929
  Receipt Date: 20160929
  Transmission Date: 20161109
  Serious: Yes (Other)
  Sender: FDA-Public Use
  Company Number: GB-MYLANLABS-2016M1041265

PATIENT

DRUGS (11)
  1. FENBID [Concomitant]
     Active Substance: IBUPROFEN
     Dosage: UNK (APPLY 3-4 TIMES/DAY)
     Dates: start: 20150908
  2. WARFARIN SODIUM. [Concomitant]
     Active Substance: WARFARIN SODIUM
     Dosage: UNK (TO BE TAKEN AS DIRECTED)
     Dates: start: 20120417
  3. COCODAMOL [Concomitant]
     Active Substance: ACETAMINOPHEN\CODEINE PHOSPHATE
     Indication: ANALGESIC THERAPY
     Dosage: UNK (TAKE 1 OR 2 4 TIMES/DAY.)
     Dates: start: 20160818, end: 20160915
  4. CARBOCISTEINE [Concomitant]
     Active Substance: CARBOCYSTEINE
     Dosage: 2 DF, TID
     Dates: start: 20160312
  5. SALBUTAMOL [Concomitant]
     Active Substance: ALBUTEROL
     Indication: WHEEZING
     Dosage: UNK (INHALE ONE OR TWO PUFFS.)
     Route: 055
     Dates: start: 20150217
  6. BISOPROLOL [Suspect]
     Active Substance: BISOPROLOL
     Indication: ATRIAL FIBRILLATION
     Dosage: UNK
     Dates: start: 20160914
  7. DALTEPARIN [Concomitant]
     Active Substance: DALTEPARIN
     Dosage: 1 DF, QD
     Dates: start: 20160828, end: 20160901
  8. PARACETAMOL [Concomitant]
     Active Substance: ACETAMINOPHEN
     Dosage: 2 DF, UNK (THREE TIMES DAILY)
     Dates: start: 20160312
  9. SERETIDE [Concomitant]
     Active Substance: FLUTICASONE PROPIONATE\SALMETEROL XINAFOATE
     Dosage: 1 DF, BID
     Route: 055
     Dates: start: 20150217
  10. RAMIPRIL. [Concomitant]
     Active Substance: RAMIPRIL
     Dosage: 1 DF, QD
     Dates: start: 20150217
  11. SPIRIVA [Concomitant]
     Active Substance: TIOTROPIUM BROMIDE MONOHYDRATE
     Dosage: 1 DF, QD
     Route: 055
     Dates: start: 20150217

REACTIONS (1)
  - Pemphigoid [Unknown]

NARRATIVE: CASE EVENT DATE: 20160915
